FAERS Safety Report 8589669-8 (Version None)
Quarter: 2012Q3

REPORT INFORMATION
  Report Type: 
  Country: None (occurrence: None)
  Receive Date: 20120813
  Receipt Date: 20120730
  Transmission Date: 20120928
  Serious: Yes (Other)
  Sender: FDA-Public Use
  Company Number: IT-MYLANLABS-2012S1015772

PATIENT
  Age: 50 Year
  Sex: Male

DRUGS (3)
  1. ADALIMUMAB [Suspect]
     Indication: PSORIATIC ARTHROPATHY
     Route: 065
  2. CYCLOSPORINE [Suspect]
     Indication: PSORIATIC ARTHROPATHY
     Route: 065
  3. METHOTREXATE [Suspect]
     Indication: PSORIATIC ARTHROPATHY
     Route: 065

REACTIONS (1)
  - SALIVARY GLAND ADENOMA [None]
